FAERS Safety Report 5352045-5 (Version None)
Quarter: 2007Q2

REPORT INFORMATION
  Report Type: 
  Country: None (occurrence: None)
  Receive Date: 20070607
  Receipt Date: 20070523
  Transmission Date: 20071010
  Serious: Yes (Hospitalization)
  Sender: FDA-Public Use
  Company Number: 2007S1002177

PATIENT
  Age: 55 Year
  Sex: Male

DRUGS (6)
  1. FENTANYL TRANSDERMAL SYSTEM [Suspect]
     Indication: ARTHRALGIA
     Dosage: 50 UG/HR; EVERY 3 DAYS; TRANSDERMAL
     Route: 062
     Dates: start: 20070201, end: 20070201
  2. FENTANYL TRANSDERMAL SYSTEM [Suspect]
     Indication: BACK PAIN
     Dosage: 50 UG/HR; EVERY 3 DAYS; TRANSDERMAL
     Route: 062
     Dates: start: 20070201, end: 20070201
  3. PENTASA [Concomitant]
  4. AVODART [Concomitant]
  5. VYTORIN [Concomitant]
  6. GLIPIZIDE [Concomitant]

REACTIONS (7)
  - ANXIETY [None]
  - DELUSION [None]
  - DIZZINESS [None]
  - DRY MOUTH [None]
  - MENTAL DISORDER [None]
  - NERVOUSNESS [None]
  - PARANOIA [None]
